FAERS Safety Report 24731702 (Version 3)
Quarter: 2025Q1

REPORT INFORMATION
  Report Type: Spontaneous
  Country: GR (occurrence: GR)
  Receive Date: 20241213
  Receipt Date: 20250103
  Transmission Date: 20250409
  Serious: Yes (Death, Life-Threatening, Other)
  Sender: FRESENIUS KABI
  Company Number: GR-GREOF-202401396

PATIENT
  Age: 69 Year
  Sex: Male
  Weight: 99 kg

DRUGS (18)
  1. BORTEZOMIB [Suspect]
     Active Substance: BORTEZOMIB
     Indication: Plasma cell myeloma
     Route: 058
     Dates: start: 20240821, end: 20241107
  2. XPOVIO [Suspect]
     Active Substance: SELINEXOR
     Indication: Plasma cell myeloma
     Route: 048
  3. DEXAMETHASONE [Suspect]
     Active Substance: DEXAMETHASONE
     Indication: Plasma cell myeloma
     Route: 048
  4. SELINEXOR [Suspect]
     Active Substance: SELINEXOR
     Indication: Plasma cell myeloma
     Route: 048
     Dates: start: 20240821, end: 20241107
  5. CEFTAZIDIME 500mg - INJECTION [Concomitant]
     Indication: Product used for unknown indication
     Dosage: MEDICATION ON 30/11/2024
  6. ALOPERIDIN 5 MG [Concomitant]
     Indication: Delirium
     Route: 048
     Dates: start: 20241121
  7. ALOPERIDIN 5 MG [Concomitant]
     Dosage: MEDICATION ON 30/11/2024
     Route: 030
  8. BLOCATENS 10 MG/TAB [Concomitant]
     Indication: Product used for unknown indication
     Dosage: MEDICATION ON 30/11/2024
  9. NEXIUM [Concomitant]
     Active Substance: ESOMEPRAZOLE MAGNESIUM
     Indication: Product used for unknown indication
     Dosage: MEDICATION ON 30/11/2024
  10. ATOVAQUONE [Concomitant]
     Active Substance: ATOVAQUONE
     Indication: Product used for unknown indication
     Dosage: MEDICATION ON 30/11/2024
  11. VALTREX [Concomitant]
     Active Substance: VALACYCLOVIR HYDROCHLORIDE
     Indication: Product used for unknown indication
     Dosage: MEDICATION ON 30/11/2024
  12. SEROQUEL [Concomitant]
     Active Substance: QUETIAPINE FUMARATE
     Indication: Product used for unknown indication
     Dosage: MEDICATION ON 30/11/2024
  13. Zyprexa 10 MG [Concomitant]
     Indication: Delirium
     Dosage: MEDICATION ON 30/11/2024
  14. Zyprexa 10 MG [Concomitant]
     Route: 048
     Dates: start: 20241119
  15. Targocid 400 MG [Concomitant]
     Indication: Product used for unknown indication
  16. CALCIUM CARBONATE\CHOLECALCIFEROL [Concomitant]
     Active Substance: CALCIUM CARBONATE\CHOLECALCIFEROL
     Indication: Product used for unknown indication
     Dosage: MEDICATION ON 30/11/2024
  17. Solu-Cortef 100 MG [Concomitant]
     Indication: Product used for unknown indication
     Dosage: MEDICATION ON 30/11/2024
  18. AMIODARONE HYDROCHLORIDE [Concomitant]
     Active Substance: AMIODARONE HYDROCHLORIDE
     Indication: Product used for unknown indication

REACTIONS (2)
  - Cataplexy [Fatal]
  - Delirium [Not Recovered/Not Resolved]

NARRATIVE: CASE EVENT DATE: 20241121
